FAERS Safety Report 12308252 (Version 1)
Quarter: 2016Q2

REPORT INFORMATION
  Report Type: Spontaneous
  Country: CN (occurrence: CN)
  Receive Date: 20160426
  Receipt Date: 20160426
  Transmission Date: 20160815
  Serious: Yes (Hospitalization, Disabling, Other)
  Sender: FDA-Public Use
  Company Number: CN-GILEAD-2016-0210640

PATIENT
  Age: 62 Year
  Sex: Male

DRUGS (1)
  1. ADEFOVIR DIPIVOXIL. [Suspect]
     Active Substance: ADEFOVIR DIPIVOXIL
     Indication: CHRONIC HEPATITIS B
     Dosage: 10 MG, QD
     Route: 048
     Dates: start: 2007

REACTIONS (8)
  - Sleep disorder [Recovered/Resolved]
  - Arthralgia [Recovered/Resolved]
  - Nocturia [Recovered/Resolved]
  - Tenderness [Recovered/Resolved]
  - Pain [Recovered/Resolved]
  - Fanconi syndrome acquired [Recovering/Resolving]
  - Gait disturbance [Recovered/Resolved]
  - Chest pain [Recovered/Resolved]
